FAERS Safety Report 19059391 (Version 1)
Quarter: 2021Q1

REPORT INFORMATION
  Report Type: Spontaneous
  Country: US (occurrence: US)
  Receive Date: 20210325
  Receipt Date: 20210325
  Transmission Date: 20210420
  Serious: Yes (Other)
  Sender: FDA-Public Use
  Company Number: US-P+L DEVELOPMENT, LLC-2108451

PATIENT
  Sex: Female

DRUGS (1)
  1. SORE THROAT (PHENOL) SPRAY [Suspect]
     Active Substance: PHENOL
     Indication: OROPHARYNGEAL PAIN
     Route: 048

REACTIONS (1)
  - Haemoptysis [None]
